FAERS Safety Report 10451682 (Version 1)
Quarter: 2014Q3

REPORT INFORMATION
  Report Type: Spontaneous
  Country: DE (occurrence: DE)
  Receive Date: 20140915
  Receipt Date: 20140915
  Transmission Date: 20150326
  Serious: Yes (Other)
  Sender: FDA-Public Use
  Company Number: GXKR2014DE003455

PATIENT

DRUGS (6)
  1. AMITRIPTYLIN NEURAXPHARM [Suspect]
     Active Substance: AMITRIPTYLINE
     Indication: DEPRESSION
     Dosage: 100 [MG/D ]
     Route: 064
  2. VENLAFAXINE [Suspect]
     Active Substance: VENLAFAXINE HYDROCHLORIDE
     Indication: EATING DISORDER
     Dosage: 150 [MG/D ]
     Route: 064
     Dates: start: 20130127, end: 20130921
  3. DOXEPIN [Suspect]
     Active Substance: DOXEPIN
     Indication: ANXIETY DISORDER
     Dosage: 50 [MG/D ]/ UNTIL AUGUST 2013
     Route: 064
  4. ZELDOX [Suspect]
     Active Substance: ZIPRASIDONE
     Indication: SCHIZOPHRENIA
     Dosage: 60 [MG/D ]
     Route: 064
     Dates: start: 20130127, end: 20130921
  5. VENLAFAXIN DURA [Suspect]
     Active Substance: VENLAFAXINE HYDROCHLORIDE
     Indication: EATING DISORDER
     Dosage: 75 [MG/D ]
     Route: 064
     Dates: start: 20130127, end: 20130921
  6. AMITRIPTYLINE [Suspect]
     Active Substance: AMITRIPTYLINE
     Indication: DEPRESSION
     Dosage: 75 [MG/D ]
     Route: 064
     Dates: start: 20130127, end: 20130921

REACTIONS (5)
  - Maternal drugs affecting foetus [None]
  - Cervical incompetence [None]
  - Neonatal respiratory distress syndrome [Recovered/Resolved]
  - Premature baby [None]
  - Feeding disorder neonatal [Recovered/Resolved]

NARRATIVE: CASE EVENT DATE: 20130921
